FAERS Safety Report 7609897-5 (Version None)
Quarter: 2011Q3

REPORT INFORMATION
  Report Type: 
  Country: None (occurrence: None)
  Receive Date: 20110714
  Receipt Date: 20110701
  Transmission Date: 20111222
  Serious: Yes (Other)
  Sender: FDA-Public Use
  Company Number: US-ELI_LILLY_AND_COMPANY-US201105002515

PATIENT
  Sex: Female
  Weight: 76.644 kg

DRUGS (6)
  1. ESTRADIOL [Concomitant]
     Dosage: UNK, UNKNOWN
     Route: 065
  2. AMLODIPINE [Concomitant]
     Dosage: UNK, UNKNOWN
     Route: 065
  3. PROGESTERONE [Concomitant]
     Dosage: UNK, UNKNOWN
     Route: 065
  4. THYROID TAB [Concomitant]
     Dosage: UNK, UNKNOWN
     Route: 065
  5. HUMATROPE [Suspect]
     Indication: HYPOPITUITARISM
     Dosage: 1 MG, 3/W
     Dates: start: 20060401
  6. TESTOSTERONE [Concomitant]
     Dosage: UNK, UNKNOWN
     Route: 065

REACTIONS (3)
  - INFLAMMATION [None]
  - PANCREATIC NEOPLASM [None]
  - STRESS [None]
